FAERS Safety Report 4474255-1 (Version None)
Quarter: 2004Q4

REPORT INFORMATION
  Report Type: 
  Country: None (occurrence: None)
  Receive Date: 20041008
  Receipt Date: 20040917
  Transmission Date: 20050328
  Serious: Yes (Hospitalization, Other)
  Sender: FDA-Public Use
  Company Number: USA040465070

PATIENT
  Age: 9 Year
  Sex: Male
  Weight: 28 kg

DRUGS (3)
  1. STRATTERA [Suspect]
     Indication: ATTENTION DEFICIT/HYPERACTIVITY DISORDER
     Dosage: 36 MG/1 DAY
     Dates: start: 20031001
  2. CONCERTA [Concomitant]
  3. ALBUTEROL [Concomitant]

REACTIONS (10)
  - DEPRESSED LEVEL OF CONSCIOUSNESS [None]
  - DRUG INEFFECTIVE [None]
  - ELECTROENCEPHALOGRAM ABNORMAL [None]
  - FAECAL INCONTINENCE [None]
  - HYPOTONIA [None]
  - PARTIAL SEIZURES WITH SECONDARY GENERALISATION [None]
  - POSTICTAL STATE [None]
  - PSYCHOMOTOR HYPERACTIVITY [None]
  - SOMNOLENCE [None]
  - URINARY INCONTINENCE [None]
